FAERS Safety Report 4336570-1 (Version None)
Quarter: 2004Q2

REPORT INFORMATION
  Report Type: 
  Country: None (occurrence: None)
  Receive Date: 20040409
  Receipt Date: 20040409
  Transmission Date: 20050107
  Serious: No
  Sender: FDA-Public Use
  Company Number: None

PATIENT
  Age: 53 Year
  Sex: Female

DRUGS (1)
  1. EFFEXOR [Suspect]
     Indication: FIBROMYALGIA
     Dosage: 1 PILL DAILY

REACTIONS (5)
  - CRYING [None]
  - DIARRHOEA [None]
  - DIZZINESS [None]
  - HEADACHE [None]
  - NAUSEA [None]
